FAERS Safety Report 7533093-3 (Version None)
Quarter: 2011Q2

REPORT INFORMATION
  Report Type: 
  Country: None (occurrence: None)
  Receive Date: 20110608
  Receipt Date: 20110526
  Transmission Date: 20111010
  Serious: Yes (Congenital Anomaly, Other)
  Sender: FDA-Public Use
  Company Number: DE-MYLANLABS-2011S1010959

PATIENT
  Sex: Female
  Weight: 3 kg

DRUGS (2)
  1. PAROXETINE HCL [Suspect]
     Dosage: 20 [MG/D ]/ FROM WK 7-8 ONLY 10 MG/D, BEFORE AND AFTERWARDS 20 MG/D
     Route: 064
     Dates: start: 20090707, end: 20100317
  2. FEMIBION [Concomitant]
     Indication: PROPHYLAXIS OF NEURAL TUBE DEFECT
     Dosage: 0.4 [MG/D ]
     Route: 064

REACTIONS (4)
  - HYPERBILIRUBINAEMIA NEONATAL [None]
  - PREMATURE BABY [None]
  - HAEMANGIOMA CONGENITAL [None]
  - DRUG EXPOSURE DURING PREGNANCY [None]
